FAERS Safety Report 5498630-1 (Version None)
Quarter: 2007Q4

REPORT INFORMATION
  Report Type: 
  Country: None (occurrence: None)
  Receive Date: 20071024
  Receipt Date: 20071024
  Transmission Date: 20080405
  Serious: Yes (Death)
  Sender: FDA-Public Use
  Company Number: None

PATIENT
  Sex: Male
  Weight: 64.7 kg

DRUGS (8)
  1. COUMADIN [Suspect]
     Dosage: 2.5 MG DAILY ORAL
     Route: 048
  2. MORPHINE [Suspect]
     Indication: PAIN
     Dosage: 1 TSP Q 2-4 HRNS PRN ORAL
     Route: 048
  3. DURAGESIC-25 [Suspect]
     Indication: PAIN
     Dosage: 25 MCG Q THREE DAYS DERM
  4. IRESSA [Suspect]
     Dosage: 250 MG DAILY ORAL
     Route: 048
     Dates: start: 20070917, end: 20071018
  5. COZAAR [Suspect]
     Indication: HYPERTENSION
     Dosage: 50 MG DAILY ORAL
     Route: 048
  6. VIAGRA [Suspect]
     Dosage: 50 MG PRN ORAL
     Route: 048
  7. COMPAZINE [Suspect]
     Indication: NAUSEA
     Dosage: 10 MG PRN ORAL
     Route: 048
  8. KLONOPIN [Suspect]
     Indication: SOMNOLENCE
     Dosage: 1 MG PRN ORAL
     Route: 048

REACTIONS (8)
  - DIARRHOEA [None]
  - HYPOTENSION [None]
  - INTESTINAL INFARCTION [None]
  - LEUKOPENIA [None]
  - METABOLIC ACIDOSIS [None]
  - NAUSEA [None]
  - RENAL IMPAIRMENT [None]
  - TACHYCARDIA [None]
